FAERS Safety Report 9432640 (Version 1)
Quarter: 2013Q3

REPORT INFORMATION
  Report Type: Report from Study
  Country: AR (occurrence: AR)
  Receive Date: 20130731
  Receipt Date: 20130731
  Transmission Date: 20140515
  Serious: Yes (Other)
  Sender: FDA-Public Use
  Company Number: PHHY2013AR081696

PATIENT
  Sex: Female

DRUGS (1)
  1. DIOVAN [Suspect]
     Indication: HYPERTENSION
     Dosage: 0.5 TABLET (160 MG), DAILY
     Route: 048
     Dates: start: 2008

REACTIONS (8)
  - Skin papilloma [Not Recovered/Not Resolved]
  - Skin mass [Unknown]
  - Scab [Unknown]
  - Skin haemorrhage [Unknown]
  - Erythema [Unknown]
  - Nervousness [Unknown]
  - Discomfort [Unknown]
  - Wrong technique in drug usage process [Unknown]
